FAERS Safety Report 9219881 (Version 1)
Quarter: 2013Q2

REPORT INFORMATION
  Report Type: Spontaneous
  Country: JP (occurrence: JP)
  Receive Date: 20130409
  Receipt Date: 20130409
  Transmission Date: 20140414
  Serious: Yes (Hospitalization)
  Sender: FDA-Public Use
  Company Number: JP-ASTRAZENECA-2013SE22445

PATIENT
  Age: 11 Year
  Sex: Male

DRUGS (6)
  1. MEROPEN [Suspect]
     Indication: BRAIN ABSCESS
     Route: 042
     Dates: start: 20130205, end: 20130215
  2. CLARITH [Concomitant]
     Route: 048
  3. MUCODYNE [Concomitant]
     Route: 048
  4. URSO [Concomitant]
     Route: 048
  5. MIDAZOLAM [Concomitant]
  6. SOLDEM 3A [Concomitant]

REACTIONS (1)
  - Hepatic function abnormal [Recovered/Resolved]
